FAERS Safety Report 9394866 (Version 3)
Quarter: 2013Q3

REPORT INFORMATION
  Report Type: Spontaneous
  Country: US (occurrence: US)
  Receive Date: 20130711
  Receipt Date: 20130911
  Transmission Date: 20140515
  Serious: Yes (Disabling, Other)
  Sender: FDA-Public Use
  Company Number: US-PFIZER INC-2013202260

PATIENT
  Sex: Female
  Weight: 102 kg

DRUGS (12)
  1. CELEBREX [Suspect]
     Indication: ARTHRITIS
     Dosage: 100 MG, 1X/DAY
  2. CELEBREX [Suspect]
     Indication: MUSCLE SPASMS
     Dosage: 200 MG, 1X/DAY
  3. CELEBREX [Suspect]
     Indication: HEADACHE
     Dosage: 200 MG, 1X/DAY
     Route: 048
     Dates: end: 201305
  4. CELEBREX [Suspect]
     Dosage: 200 MG, 1X/DAY
     Route: 048
     Dates: start: 2013
  5. SERTRALINE HCL [Suspect]
     Indication: HOT FLUSH
     Dosage: 50 MG, 1X/DAY
  6. ASPIRIN [Suspect]
     Indication: HEADACHE
     Dosage: FOUR TO FIVE TIMES A DAY
  7. CLONIDINE [Concomitant]
     Indication: HYPERTENSION
     Dosage: 0.1 MG, 2X/DAY
  8. VITAMIN E [Concomitant]
     Dosage: 800 IU, 1X/DAY
  9. HYDROCHLOROTHIAZIDE [Concomitant]
     Dosage: (HALF OF THE TABLET OF 25MG), 1X/DAY
     Route: 048
  10. ACIPHEX [Concomitant]
     Indication: GASTROOESOPHAGEAL REFLUX DISEASE
     Dosage: UNK, 1X/DAY
  11. HYDROCODONE [Concomitant]
     Dosage: 7.5/500MG, AS NEEDED
  12. KEPPRA [Concomitant]
     Indication: LIVER DISORDER
     Dosage: 500 MG, 2X/DAY

REACTIONS (10)
  - Brain neoplasm malignant [Unknown]
  - Convulsion [Unknown]
  - Arthropathy [Unknown]
  - Speech disorder [Unknown]
  - Dysphonia [Unknown]
  - Gait disturbance [Unknown]
  - Nervous system disorder [Unknown]
  - Cholelithiasis [Unknown]
  - Amnesia [Unknown]
  - Drug ineffective [Unknown]
